FAERS Safety Report 8579002-X (Version None)
Quarter: 2012Q3

REPORT INFORMATION
  Report Type: 
  Country: None (occurrence: None)
  Receive Date: 20120808
  Receipt Date: 20120801
  Transmission Date: 20120928
  Serious: Yes (Hospitalization)
  Sender: FDA-Public Use
  Company Number: FR-PFIZER INC-2012186269

PATIENT
  Age: 74 Year
  Sex: Male

DRUGS (8)
  1. PREDNISONE TAB [Suspect]
     Dosage: 20 MG, UNK
     Route: 048
     Dates: start: 20120101, end: 20120306
  2. CLOBAZAM [Suspect]
     Indication: STATUS EPILEPTICUS
     Dosage: 5 MG, 3X/DAY
     Route: 048
     Dates: start: 20120101, end: 20120313
  3. TIAPRIDAL [Suspect]
     Dosage: 100 MG, 3X/DAY
     Route: 048
     Dates: start: 20120101
  4. VALIUM [Concomitant]
  5. POTASSIUM CHLORIDE [Concomitant]
  6. VITAMIN B1 AND B6 [Concomitant]
  7. NEURONTIN [Suspect]
     Indication: PARTIAL SEIZURES
     Dosage: 400 MG, 3X/DAY
     Route: 048
     Dates: start: 20120101, end: 20120307
  8. TRIMEPRAZINE TARTRATE [Suspect]
     Dosage: UNK
     Route: 048
     Dates: end: 20120215

REACTIONS (1)
  - ABNORMAL BEHAVIOUR [None]
